FAERS Safety Report 9868722 (Version 1)
Quarter: 2014Q1

REPORT INFORMATION
  Report Type: Spontaneous
  Country: US (occurrence: US)
  Receive Date: 20140204
  Receipt Date: 20140204
  Transmission Date: 20141002
  Serious: No
  Sender: FDA-Public Use
  Company Number: US-ENDO PHARMACEUTICALS INC.-METH20130005

PATIENT
  Sex: Female

DRUGS (3)
  1. METHYLPREDNISOLONE [Suspect]
     Indication: COUGH
     Dosage: DOSEPACK
     Route: 048
     Dates: start: 201302
  2. METHYLPREDNISOLONE [Suspect]
     Indication: OROPHARYNGEAL PAIN
  3. CIPRO [Suspect]
     Indication: ANTIBIOTIC THERAPY
     Route: 048
     Dates: start: 201302

REACTIONS (2)
  - Nausea [Unknown]
  - Diarrhoea [Unknown]
